FAERS Safety Report 18280586 (Version 10)
Quarter: 2021Q3

REPORT INFORMATION
  Report Type: Report from Study
  Country: US (occurrence: US)
  Receive Date: 20200917
  Receipt Date: 20210802
  Transmission Date: 20211014
  Serious: Yes (Hospitalization, Other)
  Sender: FDA-Public Use
  Company Number: US-SEATTLE GENETICS-2020SGN02761

PATIENT
  Age: 65 Year
  Sex: Female

DRUGS (28)
  1. CHOLECALCIFEROL [Concomitant]
     Active Substance: CHOLECALCIFEROL
  2. DRONABINOL. [Concomitant]
     Active Substance: DRONABINOL
  3. LISINOPRIL. [Concomitant]
     Active Substance: LISINOPRIL
  4. MAG OXIDE [Concomitant]
     Active Substance: MAGNESIUM OXIDE
  5. HERCEPTIN [Suspect]
     Active Substance: TRASTUZUMAB
     Indication: BREAST CANCER METASTATIC
     Dosage: UNK
     Dates: start: 20200806
  6. MULTIVITAMIN + MINERAL [Concomitant]
     Active Substance: MINERALS\VITAMINS
  7. ONDANSETRON [Concomitant]
     Active Substance: ONDANSETRON
     Dosage: UNK
  8. TURMERIC + [Concomitant]
  9. CAPECITABINE. [Suspect]
     Active Substance: CAPECITABINE
     Dosage: 600 MG/M2
     Dates: start: 20200715
  10. DOCUSATE SODIUM. [Concomitant]
     Active Substance: DOCUSATE SODIUM
  11. PANTOPRAZOLE [Concomitant]
     Active Substance: PANTOPRAZOLE
  12. PROMETHAZINE [Concomitant]
     Active Substance: PROMETHAZINE HYDROCHLORIDE
  13. CAPECITABINE. [Suspect]
     Active Substance: CAPECITABINE
     Indication: PRODUCT USED FOR UNKNOWN INDICATION
     Dosage: 1000 MG/M2, BID
     Dates: start: 20200619
  14. TUMS [Concomitant]
     Active Substance: CALCIUM CARBONATE
  15. GABAPENTIN. [Concomitant]
     Active Substance: GABAPENTIN
  16. TUCATINIB [Suspect]
     Active Substance: TUCATINIB
     Indication: BREAST CANCER METASTATIC
     Dosage: 50 MG, UNK
  17. TUCATINIB [Suspect]
     Active Substance: TUCATINIB
     Dosage: 300 MG, BID
     Dates: start: 20200522
  18. TUCATINIB [Suspect]
     Active Substance: TUCATINIB
     Dosage: 250 MG, BID
     Route: 048
     Dates: start: 20201110
  19. CAPECITABINE. [Suspect]
     Active Substance: CAPECITABINE
     Dosage: 500 MG 2 TAB QAM + 1 TAB QHS X 2 WEEKS THEN 1 WEEK OFF
     Route: 048
  20. MIRTAZAPINE. [Concomitant]
     Active Substance: MIRTAZAPINE
  21. SENNA ACUTIFOLIA [Concomitant]
  22. TUCATINIB [Suspect]
     Active Substance: TUCATINIB
     Dosage: 150 MG, UNK
     Dates: start: 20200624
  23. ASPIRIN 81 [Concomitant]
     Active Substance: ASPIRIN
  24. COREG [Concomitant]
     Active Substance: CARVEDILOL
  25. TUCATINIB [Suspect]
     Active Substance: TUCATINIB
     Dosage: 250 MG, BID
     Route: 048
     Dates: start: 20200520
  26. FLUTICASONE. [Concomitant]
     Active Substance: FLUTICASONE
  27. OXYCODONE [Concomitant]
     Active Substance: OXYCODONE
  28. TRIAMCINOLONE [Concomitant]
     Active Substance: TRIAMCINOLONE

REACTIONS (17)
  - Sphincter of Oddi dysfunction [Unknown]
  - Liver function test abnormal [Unknown]
  - Loss of personal independence in daily activities [Unknown]
  - Unevaluable event [Unknown]
  - Nausea [Unknown]
  - Gallbladder disorder [Unknown]
  - Dizziness [Unknown]
  - Heart rate decreased [Unknown]
  - Fatigue [Unknown]
  - Pancreatic atrophy [Unknown]
  - Adverse drug reaction [Unknown]
  - Cognitive disorder [Unknown]
  - Liver function test increased [Unknown]
  - Insomnia [Unknown]
  - Abdominal discomfort [Unknown]
  - Gallbladder operation [Unknown]
  - Pancreatobiliary sphincterotomy [Unknown]

NARRATIVE: CASE EVENT DATE: 20210301
